FAERS Safety Report 6293607-0 (Version None)
Quarter: 2009Q3

REPORT INFORMATION
  Report Type: 
  Country: None (occurrence: None)
  Receive Date: 20090729
  Receipt Date: 20090626
  Transmission Date: 20100115
  Serious: Yes (Other)
  Sender: FDA-Public Use
  Company Number: ADR5702009

PATIENT
  Age: 64 Year
  Sex: Male

DRUGS (3)
  1. RISPERIDONE [Suspect]
     Indication: ABNORMAL BEHAVIOUR
  2. RISPERIDONE [Suspect]
     Indication: MOOD ALTERED
  3. VENLAFAXINE HYDROCHLORIDE [Concomitant]

REACTIONS (16)
  - B-CELL LYMPHOMA [None]
  - BRADYKINESIA [None]
  - CONFUSIONAL STATE [None]
  - DISORIENTATION [None]
  - DYSKINESIA [None]
  - EXTRAPYRAMIDAL DISORDER [None]
  - FACIAL PAIN [None]
  - FACIAL PALSY [None]
  - FACIAL PARESIS [None]
  - GAIT DISTURBANCE [None]
  - HEADACHE [None]
  - MASKED FACIES [None]
  - METASTASES TO MENINGES [None]
  - METASTASIS [None]
  - MOBILITY DECREASED [None]
  - URINARY INCONTINENCE [None]
